FAERS Safety Report 13801607 (Version 1)
Quarter: 2017Q3

REPORT INFORMATION
  Report Type: Spontaneous
  Country: US (occurrence: US)
  Receive Date: 20170727
  Receipt Date: 20170727
  Transmission Date: 20171127
  Serious: Yes (Life-Threatening, Hospitalization)
  Sender: FDA-Public Use
  Company Number: PHHY2017US109906

PATIENT
  Age: 84 Year

DRUGS (7)
  1. ENZALUTAMIDE [Interacting]
     Active Substance: ENZALUTAMIDE
     Indication: METASTASES TO BONE
  2. DOCETAXEL. [Suspect]
     Active Substance: DOCETAXEL
     Indication: PROSTATE CANCER
     Route: 065
  3. DOCETAXEL. [Interacting]
     Active Substance: DOCETAXEL
     Indication: METASTASES TO BONE
  4. PIPERACILLIN/TAZOBACTAM [Concomitant]
     Active Substance: PIPERACILLIN SODIUM\TAZOBACTAM SODIUM
     Indication: PNEUMONIA
  5. ENZALUTAMIDE [Interacting]
     Active Substance: ENZALUTAMIDE
     Indication: PROSTATE CANCER
     Route: 065
  6. DABIGATRAN [Interacting]
     Active Substance: DABIGATRAN
     Indication: ATRIAL FIBRILLATION
     Route: 065
  7. PIPERACILLIN/TAZOBACTAM [Concomitant]
     Active Substance: PIPERACILLIN SODIUM\TAZOBACTAM SODIUM
     Indication: NEUTROPENIA
     Route: 065

REACTIONS (20)
  - Wheezing [Recovered/Resolved]
  - Venous injury [Recovered/Resolved]
  - Oliguria [Unknown]
  - Multiple organ dysfunction syndrome [Recovered/Resolved]
  - Heart sounds [Recovered/Resolved]
  - Blood pressure systolic inspiratory decreased [Recovered/Resolved]
  - Febrile neutropenia [Unknown]
  - Coagulation time prolonged [Unknown]
  - Acute kidney injury [Unknown]
  - Hyperkalaemia [Unknown]
  - Cardiogenic shock [Unknown]
  - Cardiac tamponade [Recovered/Resolved]
  - Haemodynamic instability [Unknown]
  - Condition aggravated [Unknown]
  - Pericardial haemorrhage [Recovered/Resolved]
  - Pericardial effusion [Recovered/Resolved]
  - Crepitations [Recovered/Resolved]
  - Lethargy [Unknown]
  - Renal impairment [Unknown]
  - Drug interaction [Unknown]
